FAERS Safety Report 5813057-8 (Version None)
Quarter: 2008Q3

REPORT INFORMATION
  Report Type: 
  Country: None (occurrence: None)
  Receive Date: 20080717
  Receipt Date: 20071129
  Transmission Date: 20090109
  Serious: No
  Sender: FDA-Public Use
  Company Number: A0696463A

PATIENT
  Age: 62 Year
  Sex: Male

DRUGS (1)
  1. NICORETTE [Suspect]
     Indication: DRUG USE FOR UNKNOWN INDICATION

REACTIONS (1)
  - HICCUPS [None]
